FAERS Safety Report 14027527 (Version 2)
Quarter: 2017Q4

REPORT INFORMATION
  Report Type: Spontaneous
  Country: PH (occurrence: PH)
  Receive Date: 20170929
  Receipt Date: 20171008
  Transmission Date: 20180321
  Serious: Yes (Death, Hospitalization)
  Sender: FDA-Public Use
  Company Number: PH-B.I. PHARMACEUTICALS,INC./RIDGEFIELD-2017-BI-053182

PATIENT
  Age: 39 Year
  Sex: Male

DRUGS (1)
  1. JARDIANCE DUO [Suspect]
     Active Substance: EMPAGLIFLOZIN\METFORMIN HYDROCHLORIDE
     Indication: DIABETES MELLITUS
     Dosage: DOSE 12.5/500 MILLIGRAM
     Route: 065
     Dates: start: 201708

REACTIONS (5)
  - Myocardial infarction [Fatal]
  - Metabolic acidosis [Fatal]
  - Diabetic ketoacidosis [Fatal]
  - Hypotension [Fatal]
  - Acute kidney injury [Fatal]

NARRATIVE: CASE EVENT DATE: 201708
